FAERS Safety Report 9499175 (Version 3)
Quarter: 2013Q4

REPORT INFORMATION
  Report Type: Report from Study
  Country: US (occurrence: US)
  Receive Date: 20130905
  Receipt Date: 20131121
  Transmission Date: 20140711
  Serious: Yes (Other)
  Sender: FDA-Public Use
  Company Number: US-AMGEN-USACT2013060698

PATIENT
  Age: 55 Year
  Sex: Male
  Weight: 75.74 kg

DRUGS (19)
  1. DENOSUMAB [Suspect]
     Indication: PLASMA CELL MYELOMA
     Dosage: 120 MG, UNK
     Route: 065
     Dates: start: 20121102
  2. VELCADE [Concomitant]
     Dosage: UNK
     Dates: start: 20121019
  3. REVLIMID [Concomitant]
     Dosage: UNK
     Dates: start: 20121010
  4. XANAX [Concomitant]
     Indication: ANXIETY
     Dosage: 0.5 MG, Q6H
     Route: 048
  5. NORCO [Concomitant]
     Indication: PAIN
     Dosage: 10-325 MG, Q6H
     Route: 048
  6. CALCIUM CITRATE [Concomitant]
     Dosage: 600 UNK, BID
  7. PRILOSEC                           /00661201/ [Concomitant]
     Dosage: UNK
     Route: 048
  8. BAYER ASPIRIN [Concomitant]
     Dosage: 81 MG, UNK
     Route: 048
  9. ANTIFUNGALS [Concomitant]
     Dosage: UNK
  10. LEXAPRO [Concomitant]
     Dosage: 10 MG, QD
     Route: 048
  11. COMPAZINE                          /00013302/ [Concomitant]
     Indication: NAUSEA
     Dosage: 10 MG, Q6H
     Route: 048
  12. COMPAZINE                          /00013302/ [Concomitant]
     Indication: VOMITING
  13. DAILY-VITE [Concomitant]
     Dosage: 1 UNK, QD
     Route: 048
  14. CALCIUM [Concomitant]
     Dosage: UNK
  15. VITAMIN D                          /00107901/ [Concomitant]
     Dosage: UNK
  16. DECADRON                           /00016001/ [Concomitant]
     Dosage: UNK
     Dates: start: 20121004
  17. PERIDEX                            /00016001/ [Concomitant]
     Dosage: UNK
  18. ZOVIRAX                            /00587301/ [Concomitant]
     Dosage: UNK
  19. BACTRIM DS [Concomitant]
     Indication: PROPHYLAXIS
     Dosage: UNK

REACTIONS (1)
  - Pain in jaw [Not Recovered/Not Resolved]
